FAERS Safety Report 12677890 (Version 1)
Quarter: 2016Q3

REPORT INFORMATION
  Report Type: Spontaneous
  Country: US (occurrence: US)
  Receive Date: 20160823
  Receipt Date: 20160823
  Transmission Date: 20161109
  Serious: No
  Sender: FDA-Public Use
  Company Number: US-TARO-2015TAR01105

PATIENT
  Sex: Male
  Weight: 181.41 kg

DRUGS (6)
  1. WARFARIN SODIUM TABLETS USP 7.5MG [Suspect]
     Active Substance: WARFARIN SODIUM
     Indication: ATRIAL FLUTTER
     Dosage: UNK
     Route: 048
     Dates: start: 201503
  2. WARFARIN SODIUM TABLETS USP 1MG [Suspect]
     Active Substance: WARFARIN SODIUM
     Indication: THROMBOSIS
     Dosage: 1 MG, 5X/WEEK
     Route: 048
     Dates: start: 201503
  3. WARFARIN SODIUM TABLETS USP 1MG [Suspect]
     Active Substance: WARFARIN SODIUM
     Indication: ATRIAL FLUTTER
     Dosage: UNK
     Route: 048
     Dates: start: 201503
  4. WARFARIN SODIUM TABLETS USP 4MG [Suspect]
     Active Substance: WARFARIN SODIUM
     Indication: THROMBOSIS
     Dosage: 8 MG, 2X/WEEK
     Route: 048
     Dates: start: 201503
  5. WARFARIN SODIUM TABLETS USP 7.5MG [Suspect]
     Active Substance: WARFARIN SODIUM
     Indication: THROMBOSIS
     Dosage: 7.5 MG, 5X/WEEK
     Route: 048
     Dates: start: 201503
  6. WARFARIN SODIUM TABLETS USP 4MG [Suspect]
     Active Substance: WARFARIN SODIUM
     Indication: ATRIAL FLUTTER
     Dosage: UNK
     Route: 048
     Dates: start: 201503

REACTIONS (1)
  - International normalised ratio increased [Not Recovered/Not Resolved]

NARRATIVE: CASE EVENT DATE: 2015
